FAERS Safety Report 4657275-3 (Version None)
Quarter: 2005Q2

REPORT INFORMATION
  Report Type: 
  Country: None (occurrence: None)
  Receive Date: 20050506
  Receipt Date: 20050406
  Transmission Date: 20051028
  Serious: Yes (Other)
  Sender: FDA-Public Use
  Company Number: 2004225743US

PATIENT
  Sex: Female
  Weight: 69.4003 kg

DRUGS (9)
  1. PROVERA TABLET (MEDROXYPROGESTERONE ACETATE) [Suspect]
     Indication: HORMONE REPLACEMENT THERAPY
     Dates: start: 19830101, end: 19840101
  2. PROVERA TABLET (MEDROXYPROGESTERONE ACETATE) [Suspect]
     Indication: HORMONE REPLACEMENT THERAPY
     Dates: start: 19890101, end: 19960101
  3. CONJUGATED ESTROGENS [Suspect]
     Indication: HORMONE REPLACEMENT THERAPY
     Dates: start: 19830101, end: 19840101
  4. CONJUGATED ESTROGENS [Suspect]
     Indication: HORMONE REPLACEMENT THERAPY
     Dates: start: 19890101, end: 19960101
  5. PROVELLA-14 (ESTROGENS CONJUGATED, MEDROXYPROGESTERONE ACETATE) [Suspect]
     Indication: HORMONE REPLACEMENT THERAPY
  6. ASPIRIN [Concomitant]
  7. AMLODIPINE BESYLATE [Concomitant]
  8. TRIAMTERENE (TRIAMTERENE) [Concomitant]
  9. TOLTERODINE TARTRATE [Concomitant]

REACTIONS (1)
  - BREAST CANCER FEMALE [None]
